FAERS Safety Report 19831277 (Version 1)
Quarter: 2021Q3

REPORT INFORMATION
  Report Type: Other
  Country: CN (occurrence: CN)
  Receive Date: 20210915
  Receipt Date: 20210915
  Transmission Date: 20211014
  Serious: Yes (Other)
  Sender: FDA-Public Use
  Company Number: CN-ROCHE-2907711

PATIENT
  Age: 67 Year
  Sex: Male

DRUGS (5)
  1. TROPICAMIDE. [Concomitant]
     Active Substance: TROPICAMIDE
  2. CARTEOLOL [Concomitant]
     Active Substance: CARTEOLOL
  3. RANIBIZUMAB. [Suspect]
     Active Substance: RANIBIZUMAB
     Indication: NEOVASCULAR AGE-RELATED MACULAR DEGENERATION
     Dosage: 0.05MG/0.05 ML (ONCE IN LEFT EYE)
     Route: 050
  4. PREDNISOLONE ACETATE. [Concomitant]
     Active Substance: PREDNISOLONE ACETATE
  5. PHENYLEPHRINE [Concomitant]
     Active Substance: PHENYLEPHRINE HYDROCHLORIDE

REACTIONS (2)
  - Varicella zoster virus infection [Unknown]
  - Necrotising retinitis [Unknown]
